FAERS Safety Report 4622035-6 (Version None)
Quarter: 2005Q1

REPORT INFORMATION
  Report Type: 
  Country: None (occurrence: None)
  Receive Date: 20050328
  Receipt Date: 20031125
  Transmission Date: 20050727
  Serious: Yes (Other)
  Sender: FDA-Public Use
  Company Number: 10120

PATIENT
  Age: 12 Year
  Sex: Female

DRUGS (5)
  1. METHOTREXATE [Suspect]
  2. AZATHIOPRINE [Suspect]
  3. ETANERCEPT [Suspect]
     Dosage: 12.5 MG 2/WK
     Dates: start: 20020903, end: 20030501
  4. ETANERCEPT [Suspect]
     Dosage: 12.5 MG 2/WK
     Dates: start: 20030701, end: 20030701
  5. ETANERCEPT [Suspect]
     Dosage: 12.5 MG/ 2/WK
     Dates: start: 20030801

REACTIONS (4)
  - ALPHA HAEMOLYTIC STREPTOCOCCAL INFECTION [None]
  - ESCHERICHIA URINARY TRACT INFECTION [None]
  - URINARY TRACT INFECTION [None]
  - URINARY TRACT INFECTION ENTEROCOCCAL [None]
